FAERS Safety Report 6700623-0 (Version None)
Quarter: 2010Q2

REPORT INFORMATION
  Report Type: 
  Country: None (occurrence: None)
  Receive Date: 20100428
  Receipt Date: 20100413
  Transmission Date: 20101027
  Serious: Yes (Death, Hospitalization, Other)
  Sender: FDA-Public Use
  Company Number: DE-CELGENEUS-062-50794-10041313

PATIENT

DRUGS (4)
  1. VIDAZA [Suspect]
     Route: 058
  2. VIDAZA [Suspect]
     Dosage: 125 MG OR 150 MG
     Route: 058
  3. IMMUNE CELLS HUMAN [Suspect]
     Route: 051
  4. IMMUNE CELLS HUMAN [Suspect]

REACTIONS (9)
  - CONSTIPATION [None]
  - DIARRHOEA [None]
  - DISEASE PROGRESSION [None]
  - GRAFT VERSUS HOST DISEASE [None]
  - LEUKOCYTOSIS [None]
  - NEUTROPENIA [None]
  - NEUTROPENIC INFECTION [None]
  - SKIN IRRITATION [None]
  - UROSEPSIS [None]
